FAERS Safety Report 21627347 (Version 1)
Quarter: 2022Q4

REPORT INFORMATION
  Report Type: Report from Study
  Country: US (occurrence: US)
  Receive Date: 20221122
  Receipt Date: 20221122
  Transmission Date: 20230113
  Serious: No
  Sender: FDA-Public Use
  Company Number: US-ABBVIE-4173583

PATIENT
  Sex: Female

DRUGS (2)
  1. SKYRIZI [Suspect]
     Active Substance: RISANKIZUMAB-RZAA
     Indication: Psoriasis
     Route: 058
  2. Johnson + Johnson covid vaccine [Concomitant]
     Indication: COVID-19 immunisation
     Dosage: FREQUENCY: EVERY ONCE
     Route: 030
     Dates: start: 20201201, end: 20201201

REACTIONS (2)
  - Cough [Unknown]
  - Memory impairment [Unknown]
